FAERS Safety Report 16251646 (Version 1)
Quarter: 2019Q2

REPORT INFORMATION
  Report Type: Spontaneous
  Country: US (occurrence: US)
  Receive Date: 20190428
  Receipt Date: 20190428
  Transmission Date: 20190711
  Serious: Yes (Life-Threatening, Hospitalization, Disabling, Other)
  Sender: FDA-Public Use
  Company Number: None

PATIENT
  Age: 58 Year
  Sex: Female
  Weight: 81 kg

DRUGS (8)
  1. LEVOTHYROXINE. [Concomitant]
     Active Substance: LEVOTHYROXINE
  2. NOROXIN [Suspect]
     Active Substance: NORFLOXACIN
  3. CIPRO [Suspect]
     Active Substance: CIPROFLOXACIN HYDROCHLORIDE
     Indication: URINARY TRACT INFECTION
     Route: 048
     Dates: start: 19890411, end: 20160821
  4. FLOXIN [Suspect]
     Active Substance: OFLOXACIN
  5. FISH OIL [Concomitant]
     Active Substance: FISH OIL
  6. LEVAQUIN [Suspect]
     Active Substance: LEVOFLOXACIN
  7. LEVOFLOXACIN. [Suspect]
     Active Substance: LEVOFLOXACIN
  8. CIPROFLOXACIN. [Suspect]
     Active Substance: CIPROFLOXACIN

REACTIONS (3)
  - Aortic aneurysm [None]
  - Aneurysm [None]
  - Condition aggravated [None]

NARRATIVE: CASE EVENT DATE: 20151028
